FAERS Safety Report 5216632-7 (Version None)
Quarter: 2007Q1

REPORT INFORMATION
  Report Type: 
  Country: None (occurrence: None)
  Receive Date: 20061130
  Receipt Date: 20060807
  Transmission Date: 20070707
  Serious: Yes (Hospitalization)
  Sender: FDA-Public Use
  Company Number: US200608002075

PATIENT
  Age: 42 Year
  Sex: Male
  Weight: 81.6 kg

DRUGS (1)
  1. ZYPREXA [Suspect]
     Dosage: 75 MG
     Dates: start: 19980101, end: 20010101

REACTIONS (6)
  - BLOOD CHOLESTEROL INCREASED [None]
  - DIABETES MELLITUS [None]
  - HYPERGLYCAEMIA [None]
  - HYPERTENSION [None]
  - PANCREATITIS [None]
  - PRESCRIBED OVERDOSE [None]
